FAERS Safety Report 19157672 (Version 1)
Quarter: 2021Q2

REPORT INFORMATION
  Report Type: Spontaneous
  Country: US (occurrence: US)
  Receive Date: 20210419
  Receipt Date: 20210419
  Transmission Date: 20210717
  Serious: Yes (Hospitalization)
  Sender: FDA-Public Use
  Company Number: None

PATIENT
  Age: 70 Year
  Sex: Male
  Weight: 71.8 kg

DRUGS (3)
  1. PACLITAXEL 50 MG/M2 [Suspect]
     Active Substance: PACLITAXEL
     Indication: OESOPHAGEAL CARCINOMA
     Dosage: ?          OTHER STRENGTH:50 MG/M2;?
     Route: 042
     Dates: start: 20210208, end: 20210316
  2. CARBOPLATIN AUC 2 [Suspect]
     Active Substance: CARBOPLATIN
     Indication: OESOPHAGEAL CARCINOMA
     Route: 042
     Dates: start: 20210208, end: 20210316
  3. IMRT 5040 CGY [Concomitant]

REACTIONS (2)
  - Atrial fibrillation [None]
  - Sepsis [None]

NARRATIVE: CASE EVENT DATE: 20210322
